FAERS Safety Report 4789442-2 (Version None)
Quarter: 2005Q4

REPORT INFORMATION
  Report Type: 
  Country: None (occurrence: None)
  Receive Date: 20051004
  Receipt Date: 20051004
  Transmission Date: 20060501
  Serious: Yes (Life-Threatening)
  Sender: FDA-Public Use
  Company Number: None

PATIENT
  Age: 69 Year
  Sex: Male

DRUGS (11)
  1. INSULIN [Suspect]
     Indication: DIABETIC KETOACIDOSIS
     Dosage: INFUSION 6 UNITS/HR SSI
     Dates: start: 20050513, end: 20050521
  2. ASPIRIN [Concomitant]
  3. CEFEPIME [Concomitant]
  4. FENTANYL [Concomitant]
  5. HYDROCORTISONE [Concomitant]
  6. METRONIDAZOLE [Concomitant]
  7. PHENYTOIN [Concomitant]
  8. RANITIDINE [Concomitant]
  9. VALPROIC ACID [Concomitant]
  10. VANCOMYCIN [Concomitant]
  11. HEPARIN [Concomitant]

REACTIONS (2)
  - BLOOD GLUCOSE FLUCTUATION [None]
  - INCORRECT DRUG ADMINISTRATION DURATION [None]
